FAERS Safety Report 8287719-X (Version None)
Quarter: 2012Q2

REPORT INFORMATION
  Report Type: 
  Country: None (occurrence: None)
  Receive Date: 20120416
  Receipt Date: 20120409
  Transmission Date: 20120825
  Serious: Yes (Other)
  Sender: FDA-Public Use
  Company Number: US-FRI-1000029669

PATIENT
  Sex: Female

DRUGS (2)
  1. ORAL HYPOGLYCEMIC AGENTS NOS [Concomitant]
     Indication: TYPE 2 DIABETES MELLITUS
  2. ESCITALOPRAM [Suspect]
     Indication: DEPRESSION
     Dosage: 10 MG
     Dates: start: 20120301

REACTIONS (1)
  - BLOOD GLUCOSE FLUCTUATION [None]
